FAERS Safety Report 17248386 (Version 2)
Quarter: 2020Q1

REPORT INFORMATION
  Report Type: Report from Study
  Country: US (occurrence: US)
  Receive Date: 20200108
  Receipt Date: 20200116
  Transmission Date: 20200409
  Serious: Yes (Hospitalization, Other)
  Sender: FDA-Public Use
  Company Number: US-EISAI MEDICAL RESEARCH-EC-2019-054374

PATIENT
  Age: 19 Year
  Sex: Female
  Weight: 58 kg

DRUGS (10)
  1. LENVIMA [Suspect]
     Active Substance: LENVATINIB
     Indication: HEPATOCELLULAR CARCINOMA
     Route: 048
     Dates: start: 20190321, end: 201907
  2. 5-FU [Concomitant]
     Active Substance: FLUOROURACIL
  3. CLARITIN-D NOS [Concomitant]
     Active Substance: LORATADINE\PSEUDOEPHEDRINE SULFATE
  4. LENVIMA [Suspect]
     Active Substance: LENVATINIB
     Route: 048
     Dates: start: 2019, end: 202001
  5. VITAMIN C [Concomitant]
     Active Substance: ASCORBIC ACID
  6. INTERFERON [Concomitant]
     Active Substance: INTERFERON
  7. LENVIMA [Suspect]
     Active Substance: LENVATINIB
     Route: 048
     Dates: start: 201908, end: 201908
  8. LENVIMA [Suspect]
     Active Substance: LENVATINIB
     Route: 048
     Dates: start: 201909, end: 2019
  9. GARLIC. [Concomitant]
     Active Substance: GARLIC
  10. VITAMIN D3 [Concomitant]
     Active Substance: CHOLECALCIFEROL

REACTIONS (8)
  - Weight decreased [Unknown]
  - Fistula [Recovering/Resolving]
  - Headache [Unknown]
  - Blood pressure increased [Unknown]
  - Impaired healing [Recovering/Resolving]
  - Hepatic lesion [Recovering/Resolving]
  - Ureteric obstruction [Not Recovered/Not Resolved]
  - Inappropriate schedule of product administration [Unknown]

NARRATIVE: CASE EVENT DATE: 2019
